FAERS Safety Report 9705641 (Version 1)
Quarter: 2013Q4

REPORT INFORMATION
  Report Type: Spontaneous
  Country: US (occurrence: US)
  Receive Date: 20131122
  Receipt Date: 20131122
  Transmission Date: 20140711
  Serious: No
  Sender: FDA-Public Use
  Company Number: US-GILEAD-2008-0017346

PATIENT
  Sex: Female
  Weight: 58.97 kg

DRUGS (7)
  1. LETAIRIS [Suspect]
     Indication: PULMONARY ARTERIAL HYPERTENSION
     Route: 048
  2. LETAIRIS [Suspect]
     Route: 048
     Dates: start: 20071109
  3. COUMADIN [Concomitant]
     Route: 048
  4. TENORETIC [Concomitant]
     Route: 048
  5. SPIRIVA [Concomitant]
     Route: 055
  6. ADVAIR 250/50 [Concomitant]
     Route: 055
  7. OMEPRAZOLE [Concomitant]
     Route: 048

REACTIONS (1)
  - Local swelling [None]
